FAERS Safety Report 18164108 (Version 2)
Quarter: 2020Q4

REPORT INFORMATION
  Report Type: Report from Study
  Country: BR (occurrence: BR)
  Receive Date: 20200818
  Receipt Date: 20201022
  Transmission Date: 20210113
  Serious: Yes (Other)
  Sender: FDA-Public Use
  Company Number: PHHY2019BR135367

PATIENT
  Age: 73 Year
  Sex: Female

DRUGS (8)
  1. COSENTYX [Suspect]
     Active Substance: SECUKINUMAB
     Indication: PSORIATIC ARTHROPATHY
     Dosage: 300 MG, UNKNOWN
     Route: 065
     Dates: start: 201902
  2. COSENTYX [Suspect]
     Active Substance: SECUKINUMAB
     Dosage: UNK UNK, UNKNOWN
     Route: 065
     Dates: start: 20191105
  3. COSENTYX [Suspect]
     Active Substance: SECUKINUMAB
     Dosage: UNK UNK, QMO
     Route: 065
     Dates: start: 20190620
  4. COSENTYX [Suspect]
     Active Substance: SECUKINUMAB
     Dosage: 1 DF (PEN), UNK
     Route: 065
     Dates: start: 20190901
  5. COSENTYX [Suspect]
     Active Substance: SECUKINUMAB
     Dosage: 300 MG, QW
     Route: 065
     Dates: start: 20190221
  6. COSENTYX [Suspect]
     Active Substance: SECUKINUMAB
     Dosage: UNK UNK, UNKNOWN
     Route: 065
     Dates: start: 20190521
  7. COSENTYX [Suspect]
     Active Substance: SECUKINUMAB
     Dosage: UNK
     Route: 065
     Dates: start: 20201004
  8. COSENTYX [Suspect]
     Active Substance: SECUKINUMAB
     Dosage: UNK UNK, QMO
     Route: 065
     Dates: start: 20190705

REACTIONS (20)
  - Alopecia [Unknown]
  - Therapy non-responder [Unknown]
  - Cognitive disorder [Unknown]
  - Illness [Not Recovered/Not Resolved]
  - Rhinitis [Recovered/Resolved]
  - Joint lock [Not Recovered/Not Resolved]
  - Bursitis [Unknown]
  - Therapeutic response shortened [Unknown]
  - Dysarthria [Unknown]
  - Hypersensitivity [Recovered/Resolved]
  - Incorrect dose administered [Unknown]
  - Diabetes mellitus [Unknown]
  - Gait disturbance [Unknown]
  - Psoriasis [Unknown]
  - Wound [Not Recovered/Not Resolved]
  - Infection [Recovering/Resolving]
  - Influenza [Recovered/Resolved]
  - Decreased immune responsiveness [Unknown]
  - Product prescribing error [Unknown]
  - Injection site haemorrhage [Unknown]

NARRATIVE: CASE EVENT DATE: 20190521
